FAERS Safety Report 8530725-8 (Version None)
Quarter: 2012Q3

REPORT INFORMATION
  Report Type: 
  Country: None (occurrence: None)
  Receive Date: 20120723
  Receipt Date: 20120713
  Transmission Date: 20120928
  Serious: Yes (Other)
  Sender: FDA-Public Use
  Company Number: JP-ASTRAZENECA-2012SE40210

PATIENT
  Age: 63 Year
  Sex: Female
  Weight: 53 kg

DRUGS (4)
  1. ARIMIDEX [Suspect]
     Indication: BREAST CANCER
     Route: 048
     Dates: start: 20110531, end: 20120531
  2. ALENDRONATE SODIUM [Concomitant]
     Indication: OSTEOPOROSIS
     Route: 048
     Dates: start: 20081225
  3. PRAVASTATIN [Concomitant]
     Indication: HYPERLIPIDAEMIA
     Route: 048
     Dates: start: 20081225, end: 20120521
  4. NATEGLINIDE [Concomitant]
     Indication: DIABETES MELLITUS
     Route: 048
     Dates: start: 20110303

REACTIONS (1)
  - LEUKOCYTOCLASTIC VASCULITIS [None]
